FAERS Safety Report 8900367 (Version 1)
Quarter: 2012Q4

REPORT INFORMATION
  Report Type: 
  Country: US (occurrence: US)
  Receive Date: 20121109
  Receipt Date: 20121109
  Transmission Date: 20130627
  Serious: No
  Sender: FDA-Public Use
  Company Number: US-PFIZER INC-2012277666

PATIENT
  Age: 47 Year
  Sex: Female
  Weight: 92.97 kg

DRUGS (2)
  1. PRISTIQ [Suspect]
     Indication: DEPRESSION
     Dosage: 50 mg, 1x/day
     Route: 048
     Dates: start: 2009
  2. PRISTIQ [Suspect]
     Indication: ANXIETY

REACTIONS (1)
  - Alopecia [Not Recovered/Not Resolved]
